FAERS Safety Report 25583542 (Version 1)
Quarter: 2025Q3

REPORT INFORMATION
  Report Type: Spontaneous
  Country: AU (occurrence: AU)
  Receive Date: 20250721
  Receipt Date: 20250721
  Transmission Date: 20251020
  Serious: Yes (Death, Congenital Anomaly, Other)
  Sender: AMGEN
  Company Number: None

PATIENT
  Age: 33 Year
  Sex: Female

DRUGS (6)
  1. IVABRADINE [Suspect]
     Active Substance: IVABRADINE
     Indication: Dilated cardiomyopathy
     Dosage: 5 MG, BID
     Route: 048
  2. BISOPROLOL FUMARATE [Suspect]
     Active Substance: BISOPROLOL FUMARATE
     Indication: Dilated cardiomyopathy
     Dosage: 10 MG, QD
     Route: 065
  3. DAPAGLIFLOZIN PROPANEDIOL [Suspect]
     Active Substance: DAPAGLIFLOZIN PROPANEDIOL
     Indication: Dilated cardiomyopathy
     Dosage: 10 MG, QD
     Route: 065
  4. FUROSEMIDE [Suspect]
     Active Substance: FUROSEMIDE
     Indication: Dilated cardiomyopathy
     Dosage: 40 MG, QD
     Route: 065
  5. SPIRONOLACTONE [Suspect]
     Active Substance: SPIRONOLACTONE
     Indication: Dilated cardiomyopathy
     Dosage: 25 MG, QD
     Route: 065
  6. SACUBITRIL\VALSARTAN [Suspect]
     Active Substance: SACUBITRIL\VALSARTAN
     Indication: Dilated cardiomyopathy
     Dosage: 1 DF, BID
     Route: 065

REACTIONS (4)
  - Foetal death [Fatal]
  - Foetal malformation [Fatal]
  - Maternal exposure during pregnancy [Fatal]
  - Product use issue [Fatal]

NARRATIVE: CASE EVENT DATE: 20250101
